FAERS Safety Report 7347958-9 (Version None)
Quarter: 2011Q1

REPORT INFORMATION
  Report Type: 
  Country: None (occurrence: None)
  Receive Date: 20110311
  Receipt Date: 20110225
  Transmission Date: 20110831
  Serious: Yes (Hospitalization, Other)
  Sender: FDA-Public Use
  Company Number: US-BAYER-2011-022061

PATIENT
  Sex: Female
  Weight: 58.957 kg

DRUGS (8)
  1. YASMIN [Suspect]
     Indication: SKIN DISORDER
  2. CEPHALEXIN [Concomitant]
     Dosage: 500 MG, UNK
     Dates: start: 20060417
  3. LEXAPRO [Concomitant]
     Dosage: 100 MG, UNK
     Dates: start: 20060929
  4. OXYCODONE [Concomitant]
     Dosage: UNK
     Dates: start: 20051128
  5. YASMIN [Suspect]
     Indication: CONTRACEPTION
     Dosage: UNK
     Dates: start: 20010101, end: 20090101
  6. PROMETHAZINE [Concomitant]
     Dosage: UNK
     Dates: start: 20041019
  7. SEROQUEL [Concomitant]
     Dosage: 300 MG, UNK
     Dates: start: 20081125
  8. PROPRANOLOL [Concomitant]
     Dosage: 20 MG, UNK
     Dates: start: 20060427

REACTIONS (4)
  - GALLBLADDER DISORDER [None]
  - PREGNANCY [None]
  - NEPHROLITHIASIS [None]
  - ABORTION SPONTANEOUS [None]
